FAERS Safety Report 8316408-8 (Version None)
Quarter: 2012Q2

REPORT INFORMATION
  Report Type: 
  Country: None (occurrence: None)
  Receive Date: 20120425
  Receipt Date: 20120425
  Transmission Date: 20120825
  Serious: Yes (Hospitalization)
  Sender: FDA-Public Use
  Company Number: None

PATIENT
  Sex: Male
  Weight: 81.6475 kg

DRUGS (1)
  1. PRADAXA [Suspect]
     Indication: ATRIAL FIBRILLATION
     Dosage: 150 MG TWICE DAILY ORAL
     Route: 048
     Dates: start: 20110801, end: 20120301

REACTIONS (3)
  - DYSPNOEA [None]
  - HAEMOTHORAX [None]
  - PLEURAL EFFUSION [None]
